FAERS Safety Report 7478668-5 (Version None)
Quarter: 2011Q2

REPORT INFORMATION
  Report Type: 
  Country: None (occurrence: None)
  Receive Date: 20110511
  Receipt Date: 20110511
  Transmission Date: 20111010
  Serious: Yes (Other)
  Sender: FDA-Public Use
  Company Number: None

PATIENT
  Sex: Male
  Weight: 94.3482 kg

DRUGS (4)
  1. CARBIDOPA + LEVODOPA [Suspect]
     Indication: PARKINSON'S DISEASE
     Dosage: CURRENT 1 TAB TID P.O. IN 2008 2 TABS 7X/DAY P.O.
     Route: 048
  2. STALEVO 100 [Concomitant]
  3. OXYTROL [Concomitant]
  4. SEROQUEL [Concomitant]

REACTIONS (2)
  - PRODUCT SUBSTITUTION ISSUE [None]
  - HEADACHE [None]
